FAERS Safety Report 25181307 (Version 1)
Quarter: 2025Q2

REPORT INFORMATION
  Report Type: Spontaneous
  Country: AU (occurrence: AU)
  Receive Date: 20250410
  Receipt Date: 20250410
  Transmission Date: 20250717
  Serious: Yes (Other)
  Sender: ACCORD
  Company Number: None

PATIENT
  Age: 43 Year
  Sex: Female

DRUGS (2)
  1. METHOTREXATE [Suspect]
     Active Substance: METHOTREXATE
     Indication: Product used for unknown indication
  2. FOLIC ACID [Concomitant]
     Active Substance: FOLIC ACID

REACTIONS (7)
  - Hand fracture [Unknown]
  - Lymphoproliferative disorder [Unknown]
  - Monoclonal B-cell lymphocytosis [Unknown]
  - Paraneoplastic encephalomyelitis [Unknown]
  - Stiff person syndrome [Unknown]
  - Fall [Unknown]
  - Thyroid disorder [Unknown]
